FAERS Safety Report 6247998-7 (Version None)
Quarter: 2009Q2

REPORT INFORMATION
  Report Type: 
  Country: None (occurrence: None)
  Receive Date: 20090626
  Receipt Date: 20090617
  Transmission Date: 20091009
  Serious: Yes (Other)
  Sender: FDA-Public Use
  Company Number: AU-JNJCH-2009016712

PATIENT

DRUGS (1)
  1. NICORETTE PATCH STEP 1 15MG [Suspect]
     Indication: DRUG USE FOR UNKNOWN INDICATION
     Dosage: TEXT:UNSPECIFIED
     Route: 062

REACTIONS (3)
  - APPLICATION SITE BURN [None]
  - PRURITUS [None]
  - SKIN EXFOLIATION [None]
